FAERS Safety Report 8972154 (Version 1)
Quarter: 2012Q4

REPORT INFORMATION
  Report Type: Report from Study
  Country: NL (occurrence: NL)
  Receive Date: 20121218
  Receipt Date: 20121218
  Transmission Date: 20130627
  Serious: Yes (Other)
  Sender: FDA-Public Use
  Company Number: NL-BRISTOL-MYERS SQUIBB COMPANY-17192774

PATIENT
  Age: 67 Year
  Sex: Male
  Weight: 72 kg

DRUGS (8)
  1. TENIPOSIDE [Suspect]
     Indication: CENTRAL NERVOUS SYSTEM LYMPHOMA
     Dosage: Last dose: 06Dec10
     Route: 042
     Dates: start: 20101205
  2. BICNU [Suspect]
     Indication: CENTRAL NERVOUS SYSTEM LYMPHOMA
     Route: 042
     Dates: start: 20101207
  3. MTX [Suspect]
     Indication: CENTRAL NERVOUS SYSTEM LYMPHOMA
     Route: 042
     Dates: start: 20101204
  4. RITUXIMAB [Suspect]
     Indication: CENTRAL NERVOUS SYSTEM LYMPHOMA
     Dosage: On 10Dec10 700mg
     Route: 042
     Dates: start: 20101203
  5. PREDNISOLONE [Suspect]
     Indication: CENTRAL NERVOUS SYSTEM LYMPHOMA
     Dosage: On 08Dec2010 110mg
     Route: 048
     Dates: start: 20101204
  6. PANTOPRAZOLE [Concomitant]
     Indication: DYSPEPSIA
     Route: 048
  7. DEXAMETHASONE [Concomitant]
     Route: 048
  8. PROMETHAZINE [Concomitant]
     Indication: NAUSEA
     Route: 048

REACTIONS (1)
  - Renal failure acute [Recovered/Resolved]
